FAERS Safety Report 7185363-9 (Version None)
Quarter: 2010Q4

REPORT INFORMATION
  Report Type: 
  Country: None (occurrence: None)
  Receive Date: 20101222
  Receipt Date: 20101210
  Transmission Date: 20110411
  Serious: Yes (Life-Threatening, Hospitalization, Disabling)
  Sender: FDA-Public Use
  Company Number: FR-PFIZER INC-2010173462

PATIENT
  Age: 68 Year
  Sex: Male

DRUGS (2)
  1. CORDARONE [Suspect]
     Indication: ATRIAL FIBRILLATION
     Dosage: 200 MG TABLET, DAILY DOSE UNKNOWN
     Route: 048
     Dates: start: 20100101, end: 20100401
  2. PREVISCAN [Concomitant]

REACTIONS (2)
  - CARDIOGENIC SHOCK [None]
  - HYPERTHYROIDISM [None]
